FAERS Safety Report 16325601 (Version 1)
Quarter: 2019Q2

REPORT INFORMATION
  Report Type: Report from Study
  Country: GB (occurrence: GB)
  Receive Date: 20190517
  Receipt Date: 20190517
  Transmission Date: 20190711
  Serious: Yes (Hospitalization)
  Sender: FDA-Public Use
  Company Number: GB-PFIZER INC-2019206676

PATIENT

DRUGS (2)
  1. ETOPOSIDE. [Suspect]
     Active Substance: ETOPOSIDE
     Indication: GERM CELL CANCER METASTATIC
     Dosage: UNK, CYCLIC
  2. CARBOPLATIN. [Suspect]
     Active Substance: CARBOPLATIN
     Indication: GERM CELL CANCER METASTATIC
     Dosage: UNK, CYCLIC

REACTIONS (2)
  - Sepsis [Unknown]
  - Multiple organ dysfunction syndrome [Unknown]
